FAERS Safety Report 24963137 (Version 1)
Quarter: 2025Q1

REPORT INFORMATION
  Report Type: Spontaneous
  Country: GB (occurrence: GB)
  Receive Date: 20250213
  Receipt Date: 20250213
  Transmission Date: 20250408
  Serious: Yes (Other)
  Sender: NOVO NORDISK
  Company Number: GB-MHRA-EMIS-1552-8f1b3b54-f711-4299-9884-ca41fb240392

PATIENT
  Age: 44 Year
  Sex: Male
  Weight: 117 kg

DRUGS (1)
  1. WEGOVY [Suspect]
     Active Substance: SEMAGLUTIDE
     Indication: Product used for unknown indication
     Route: 058
     Dates: start: 20241022, end: 20250122

REACTIONS (2)
  - Thyroiditis [Unknown]
  - Pain [Unknown]
